FAERS Safety Report 5277586-0 (Version None)
Quarter: 2007Q1

REPORT INFORMATION
  Report Type: 
  Country: None (occurrence: None)
  Receive Date: 20070327
  Receipt Date: 20070326
  Transmission Date: 20070707
  Serious: Yes (Death)
  Sender: FDA-Public Use
  Company Number: JP-SANOFI-SYNTHELABO-F01200601876

PATIENT
  Age: 51 Year
  Sex: Male
  Weight: 60 kg

DRUGS (5)
  1. LEUCOVORIN CALCIUM [Suspect]
     Dosage: 334 MG/BODY=200 MG/M2, INFUSION D1
     Route: 042
     Dates: start: 20050615, end: 20050615
  2. FLUOROURACIL [Suspect]
     Dosage: 668 MG/BODY=400 MG/M2 IN BOLUS THEN 4008 MG/BODY=2400 MG/M2 AS INFUSION, D1-2
     Route: 042
     Dates: start: 20050615, end: 20050616
  3. OXALIPLATIN [Suspect]
     Indication: COLON CANCER
     Dosage: 142 MG/BODY=85 MG/M2, INFUSION D1)
     Route: 042
     Dates: start: 20050615, end: 20050615
  4. VENOGLOBULIN [Concomitant]
     Route: 042
     Dates: start: 20050726, end: 20050726
  5. FUNGUARD [Concomitant]
     Route: 042
     Dates: start: 20050726, end: 20050726

REACTIONS (2)
  - LEUKOPENIA [None]
  - NEUTROPENIA [None]
